FAERS Safety Report 16106254 (Version 1)
Quarter: 2019Q1

REPORT INFORMATION
  Report Type: Spontaneous
  Country: IT (occurrence: IT)
  Receive Date: 20190322
  Receipt Date: 20190322
  Transmission Date: 20190418
  Serious: Yes (Hospitalization)
  Sender: FDA-Public Use
  Company Number: IT-VELOXIS PHARMACEUTICALS, INC.-2019VELIT1444

PATIENT
  Age: 18 Year
  Sex: Male

DRUGS (1)
  1. ENVARSUS XR [Suspect]
     Active Substance: TACROLIMUS
     Indication: RENAL TRANSPLANT
     Dosage: UNK
     Route: 048

REACTIONS (8)
  - Purtscher retinopathy [Unknown]
  - Hypertension [Unknown]
  - Blindness [Unknown]
  - Renal impairment [Unknown]
  - Immunosuppressant drug level increased [Unknown]
  - Asthenia [Unknown]
  - Deafness [Unknown]
  - Headache [Unknown]
